FAERS Safety Report 7980566-5 (Version None)
Quarter: 2011Q4

REPORT INFORMATION
  Report Type: 
  Country: None (occurrence: None)
  Receive Date: 20111214
  Receipt Date: 20111208
  Transmission Date: 20120403
  Serious: Yes (Hospitalization)
  Sender: FDA-Public Use
  Company Number: PHHY2011CA107092

PATIENT
  Age: 79 Year
  Sex: Male
  Weight: 101 kg

DRUGS (2)
  1. FLUOROURACIL [Suspect]
     Dosage: UNK
     Route: 040
  2. LEUCOVORIN CALCIUM [Suspect]

REACTIONS (1)
  - ARTHRALGIA [None]
